FAERS Safety Report 8517729-6 (Version None)
Quarter: 2012Q3

REPORT INFORMATION
  Report Type: 
  Country: None (occurrence: None)
  Receive Date: 20120718
  Receipt Date: 20120710
  Transmission Date: 20120928
  Serious: Yes (Hospitalization)
  Sender: FDA-Public Use
  Company Number: DE-JNJFOC-20120704591

PATIENT
  Sex: Male

DRUGS (2)
  1. XARELTO [Suspect]
     Indication: PRODUCT USED FOR UNKNOWN INDICATION
     Route: 065
  2. FALITHROM [Concomitant]

REACTIONS (2)
  - POLYARTHRITIS [None]
  - RENAL FAILURE ACUTE [None]
